FAERS Safety Report 22684297 (Version 6)
Quarter: 2024Q1

REPORT INFORMATION
  Report Type: Report from Study
  Country: CA (occurrence: CA)
  Receive Date: 20230709
  Receipt Date: 20240104
  Transmission Date: 20240410
  Serious: Yes (Hospitalization, Other)
  Sender: FDA-Public Use
  Company Number: CA-JNJFOC-20230640915

PATIENT
  Age: 57 Year
  Sex: Female

DRUGS (9)
  1. REMICADE [Suspect]
     Active Substance: INFLIXIMAB
     Indication: Colitis ulcerative
     Dosage: EXPIRY: 28-FEB-2026, 01-FEB-2026
     Route: 041
     Dates: start: 20150220
  2. VANCOMYCIN [Suspect]
     Active Substance: VANCOMYCIN
     Indication: Clostridium difficile infection
     Route: 065
     Dates: start: 20230628
  3. VANCOMYCIN [Suspect]
     Active Substance: VANCOMYCIN
     Indication: Infection
     Route: 065
     Dates: start: 2023
  4. AMOXICILLIN\CLAVULANATE POTASSIUM [Suspect]
     Active Substance: AMOXICILLIN\CLAVULANATE POTASSIUM
     Indication: Clostridium difficile infection
     Dosage: 875+125 MG
     Route: 065
     Dates: start: 2023
  5. AMOXICILLIN\CLAVULANATE POTASSIUM [Suspect]
     Active Substance: AMOXICILLIN\CLAVULANATE POTASSIUM
     Indication: Infection
  6. PREDNISONE [Suspect]
     Active Substance: PREDNISONE
     Indication: Clostridium difficile infection
     Route: 065
     Dates: start: 2023
  7. PREDNISONE [Suspect]
     Active Substance: PREDNISONE
     Indication: Infection
  8. DUPILUMAB [Concomitant]
     Active Substance: DUPILUMAB
     Indication: Product used for unknown indication
     Route: 065
  9. OXAZEPAM [Concomitant]
     Active Substance: OXAZEPAM
     Indication: Product used for unknown indication
     Route: 065

REACTIONS (8)
  - Infection [Recovering/Resolving]
  - Clostridium difficile infection [Recovering/Resolving]
  - Sepsis [Recovering/Resolving]
  - Diarrhoea infectious [Recovering/Resolving]
  - Urinary tract infection [Recovering/Resolving]
  - Eczema [Recovering/Resolving]
  - Abdominal pain [Unknown]
  - Inappropriate schedule of product administration [Unknown]

NARRATIVE: CASE EVENT DATE: 20230101
